FAERS Safety Report 23398960 (Version 1)
Quarter: 2024Q1

REPORT INFORMATION
  Report Type: Spontaneous
  Country: US (occurrence: US)
  Receive Date: 20240112
  Receipt Date: 20240112
  Transmission Date: 20240410
  Serious: Yes (Other)
  Sender: FDA-Public Use
  Company Number: US-BAUSCH-BL-2024-000399

PATIENT
  Age: 67 Year
  Sex: Male
  Weight: 102.6 kg

DRUGS (4)
  1. RIBAVIRIN [Suspect]
     Active Substance: RIBAVIRIN
     Indication: Chronic hepatitis C
     Route: 065
  2. RIBAVIRIN [Suspect]
     Active Substance: RIBAVIRIN
     Indication: Product use in unapproved indication
  3. SOVALDI [Concomitant]
     Active Substance: SOFOSBUVIR
     Indication: Chronic hepatitis C
     Dosage: STOPPED ABOUT 9TH OR 10TH WEEK.
     Route: 065
  4. PEGASYS [Concomitant]
     Active Substance: PEGINTERFERON ALFA-2A
     Indication: Chronic hepatitis C
     Dosage: STOPPED ABOUT 9TH OR 10TH WEEK.
     Route: 065

REACTIONS (3)
  - Thrombocytopenia [Unknown]
  - Hepatitis C [Unknown]
  - Product use in unapproved indication [Unknown]
